FAERS Safety Report 8222323-0 (Version None)
Quarter: 2012Q1

REPORT INFORMATION
  Report Type: 
  Country: None (occurrence: None)
  Receive Date: 20120320
  Receipt Date: 20120313
  Transmission Date: 20120608
  Serious: Yes (Hospitalization)
  Sender: FDA-Public Use
  Company Number: PL-GLAXOSMITHKLINE-B0789485A

PATIENT
  Sex: Male
  Weight: 60 kg

DRUGS (5)
  1. TRAMADOL HYDROCHLORIDE [Concomitant]
     Indication: PANCREATIC CARCINOMA
     Dates: start: 20120201, end: 20120209
  2. BUSCOLYSIN [Concomitant]
     Indication: PANCREATIC CARCINOMA
  3. NO-SPA [Concomitant]
     Indication: PANCREATIC CARCINOMA
  4. SERTRALINE HYDROCHLORIDE [Concomitant]
     Indication: PANCREATIC CARCINOMA
     Route: 048
     Dates: start: 20111101, end: 20120209
  5. ZOFRAN [Suspect]
     Indication: PRODUCT USED FOR UNKNOWN INDICATION
     Dosage: 24MG PER DAY
     Route: 048
     Dates: start: 20120201, end: 20120209

REACTIONS (1)
  - SEROTONIN SYNDROME [None]
